FAERS Safety Report 10606695 (Version 2)
Quarter: 2014Q4

REPORT INFORMATION
  Report Type: Report from Study
  Country: GR (occurrence: GR)
  Receive Date: 20141125
  Receipt Date: 20141217
  Transmission Date: 20150529
  Serious: Yes (Hospitalization)
  Sender: FDA-Public Use
  Company Number: GR-SA-2014SA157324

PATIENT
  Age: 65 Year
  Sex: Male
  Weight: 78 kg

DRUGS (9)
  1. 5-FU [Suspect]
     Active Substance: FLUOROURACIL
     Indication: COLON CANCER METASTATIC
     Dosage: FREQUENCY; DAY 1-2 EVERY 2 WEEKS, INFUSION
     Route: 041
     Dates: start: 20141001, end: 20141001
  2. ZOFRON [Concomitant]
     Active Substance: ONDANSETRON
     Indication: PREMEDICATION
     Route: 042
     Dates: start: 20141001, end: 20141015
  3. AFLIBERCEPT [Suspect]
     Active Substance: AFLIBERCEPT
     Indication: COLON CANCER METASTATIC
     Route: 041
     Dates: start: 20141001, end: 20141001
  4. SEROQUEL [Concomitant]
     Active Substance: QUETIAPINE FUMARATE
     Indication: DEPRESSION
     Route: 048
  5. DEXAMETHASONE. [Concomitant]
     Active Substance: DEXAMETHASONE
     Indication: PREMEDICATION
     Route: 042
     Dates: start: 20141001, end: 20141015
  6. IRINOTECAN [Suspect]
     Active Substance: IRINOTECAN
     Indication: COLON CANCER METASTATIC
     Route: 041
     Dates: start: 20141001, end: 20141001
  7. CALCIUM FOLINATE [Suspect]
     Active Substance: LEUCOVORIN CALCIUM
     Indication: COLON CANCER METASTATIC
     Route: 041
     Dates: start: 20141001, end: 20141001
  8. 5-FU [Suspect]
     Active Substance: FLUOROURACIL
     Indication: COLON CANCER METASTATIC
     Dosage: FREQUENCY; DAY 1 EVERY 2 WEEKS, BOLUS
     Route: 040
     Dates: start: 20141001, end: 20141001
  9. EFFEXOR [Concomitant]
     Active Substance: VENLAFAXINE HYDROCHLORIDE
     Indication: DEPRESSION
     Route: 048

REACTIONS (1)
  - Acute kidney injury [Recovered/Resolved]

NARRATIVE: CASE EVENT DATE: 20141108
